FAERS Safety Report 4436539-2 (Version None)
Quarter: 2004Q3

REPORT INFORMATION
  Report Type: 
  Country: None (occurrence: None)
  Receive Date: 20040830
  Receipt Date: 20040617
  Transmission Date: 20050211
  Serious: No
  Sender: FDA-Public Use
  Company Number: US-BRISTOL-MYERS SQUIBB COMPANY-12619110

PATIENT
  Sex: Female

DRUGS (3)
  1. ABILIFY [Suspect]
     Route: 048
  2. ZYPREXA [Concomitant]
     Dosage: AT BEDTIME
  3. FISH OIL [Concomitant]

REACTIONS (1)
  - RENAL DISORDER [None]
